FAERS Safety Report 10797767 (Version 1)
Quarter: 2015Q1

REPORT INFORMATION
  Report Type: Spontaneous
  Country: US (occurrence: US)
  Receive Date: 20150216
  Receipt Date: 20150216
  Transmission Date: 20150721
  Serious: No
  Sender: FDA-Public Use
  Company Number: US-PFIZER INC-2015051131

PATIENT
  Age: 66 Year
  Sex: Male
  Weight: 113.38 kg

DRUGS (1)
  1. LIPITOR [Suspect]
     Active Substance: ATORVASTATIN CALCIUM
     Indication: PROPHYLAXIS
     Dosage: 80 MG, 1X/DAY

REACTIONS (1)
  - Urticaria [Not Recovered/Not Resolved]
